FAERS Safety Report 9068857 (Version 5)
Quarter: 2013Q4

REPORT INFORMATION
  Report Type: Spontaneous
  Country: US (occurrence: US)
  Receive Date: 20130215
  Receipt Date: 20131227
  Transmission Date: 20140711
  Serious: Yes (Disabling, Other)
  Sender: FDA-Public Use
  Company Number: US-PFIZER INC-2013059225

PATIENT
  Age: 38 Year
  Sex: Female
  Weight: 69.39 kg

DRUGS (21)
  1. MS CONTIN [Suspect]
     Indication: PAIN
     Dosage: 100 MG, 3X/DAY
     Route: 048
     Dates: start: 2005, end: 20120915
  2. MS CONTIN [Suspect]
     Dosage: UNK
     Route: 048
     Dates: end: 20040923
  3. MS CONTIN [Suspect]
     Dosage: 20 MG, UNK
     Route: 048
     Dates: start: 20041208
  4. MS CONTIN [Suspect]
     Dosage: 30 MG, UNK
     Route: 048
     Dates: start: 20041220
  5. MS CONTIN [Suspect]
     Dosage: 60 MG THREE TIMES DAILY
     Route: 065
     Dates: start: 20050323
  6. MS CONTIN [Suspect]
     Dosage: 100 UNK, UNK
     Route: 048
     Dates: start: 20051228
  7. MS CONTIN [Suspect]
     Dosage: 100 MG, Q8H
     Route: 048
     Dates: start: 20060814
  8. FENTANYL [Suspect]
     Dosage: 100 MG, UNK
     Route: 062
  9. FENTANYL [Suspect]
     Dosage: 25 MCG/HR
     Route: 062
     Dates: start: 20040923
  10. FENTANYL [Suspect]
     Dosage: 100 MCG/HR
     Route: 062
     Dates: start: 20041229
  11. DARVOCET [Concomitant]
     Dosage: UNK
  12. VICODIN [Concomitant]
     Indication: PAIN
     Dosage: UNK, EVERY 4 HOURS
  13. CELEBREX [Concomitant]
     Dosage: UNK
  14. ELAVIL [Concomitant]
     Dosage: UNK
  15. LIDODERM [Concomitant]
     Dosage: UNK
  16. DURAGESIC [Concomitant]
     Dosage: UNK
  17. DICLOFEN [Concomitant]
     Dosage: 75 MG TWICE DAILY
  18. DICLOFEN [Concomitant]
     Dosage: 75MG AT HOUR OF SLEEP
  19. NORCO [Concomitant]
     Dosage: 10MG/ 325MG ONE EVERY FOUR HOURS
  20. HYDROXYZINE [Concomitant]
     Dosage: 10 MG, UNK
  21. CYMBALTA [Concomitant]
     Dosage: UNK

REACTIONS (26)
  - Tooth fracture [Not Recovered/Not Resolved]
  - Tooth loss [Not Recovered/Not Resolved]
  - Tooth infection [Not Recovered/Not Resolved]
  - Tooth discolouration [Not Recovered/Not Resolved]
  - Gingival discolouration [Not Recovered/Not Resolved]
  - Dental caries [Not Recovered/Not Resolved]
  - Personality disorder [Unknown]
  - Psychiatric symptom [Unknown]
  - Dry mouth [Unknown]
  - Toothache [Not Recovered/Not Resolved]
  - Eye infection [Unknown]
  - Major depression [Unknown]
  - Drug effect increased [Unknown]
  - Pain [Unknown]
  - Musculoskeletal stiffness [Unknown]
  - Urinary incontinence [Unknown]
  - Functional gastrointestinal disorder [Unknown]
  - Affective disorder [Unknown]
  - Neck pain [Unknown]
  - Back pain [Unknown]
  - Back pain [Unknown]
  - Arthralgia [Unknown]
  - Pain in extremity [Unknown]
  - Anxiety [Unknown]
  - Depression [Unknown]
  - Obesity [Unknown]
